FAERS Safety Report 7417951-6 (Version None)
Quarter: 2011Q2

REPORT INFORMATION
  Report Type: 
  Country: None (occurrence: None)
  Receive Date: 20110415
  Receipt Date: 20110412
  Transmission Date: 20111010
  Serious: Yes (Other)
  Sender: FDA-Public Use
  Company Number: BR-PFIZER INC-2011080363

PATIENT
  Age: 71 Year
  Sex: Female
  Weight: 67 kg

DRUGS (4)
  1. LIPITOR [Suspect]
     Indication: BLOOD CHOLESTEROL INCREASED
     Dosage: 10 MG, 1X/DAY
     Route: 048
     Dates: start: 20110212, end: 20110101
  2. SPIRONOLACTONE [Concomitant]
     Dosage: 25 MG, UNK
     Dates: start: 20100412
  3. ZETIA [Concomitant]
     Indication: BLOOD GLUCOSE
     Dosage: UNK
  4. DIOVAN HCT [Concomitant]
     Indication: HYPERTENSION
     Dosage: UNK
     Dates: start: 20090412

REACTIONS (3)
  - PAIN [None]
  - GAIT DISTURBANCE [None]
  - MUSCULAR WEAKNESS [None]
